FAERS Safety Report 21988472 (Version 1)
Quarter: 2023Q1

REPORT INFORMATION
  Report Type: Other
  Country: US (occurrence: None)
  Receive Date: 20230214
  Receipt Date: 20230214
  Transmission Date: 20230417
  Serious: No
  Sender: FDA-Public Use
  Company Number: US-ROCHE-3281047

PATIENT
  Age: 66 Year
  Sex: Female
  Weight: 72.640 kg

DRUGS (6)
  1. OCREVUS [Suspect]
     Active Substance: OCRELIZUMAB
     Indication: Relapsing-remitting multiple sclerosis
     Dosage: YES, REFILL 7 TIMES
     Route: 042
     Dates: start: 20230125
  2. VALACYCLOVIR [Concomitant]
     Active Substance: VALACYCLOVIR HYDROCHLORIDE
     Indication: Herpes zoster
     Route: 048
     Dates: start: 20230125, end: 202302
  3. AMANTADINE [Concomitant]
     Active Substance: AMANTADINE
  4. DITROPAN [Concomitant]
     Active Substance: OXYBUTYNIN CHLORIDE
  5. MELOXICAM [Concomitant]
     Active Substance: MELOXICAM
  6. WELLBUTRIN [Concomitant]
     Active Substance: BUPROPION HYDROCHLORIDE

REACTIONS (2)
  - Herpes zoster [Not Recovered/Not Resolved]
  - Pain [Not Recovered/Not Resolved]

NARRATIVE: CASE EVENT DATE: 20230125
